FAERS Safety Report 15482904 (Version 1)
Quarter: 2018Q4

REPORT INFORMATION
  Report Type: Spontaneous
  Country: US (occurrence: US)
  Receive Date: 20181003
  Receipt Date: 20181003
  Transmission Date: 20190205
  Serious: Yes (Hospitalization)
  Sender: FDA-Public Use
  Company Number: None

PATIENT
  Age: 70 Year
  Sex: Female
  Weight: 131.1 kg

DRUGS (6)
  1. ONCOVIN [Suspect]
     Active Substance: VINCRISTINE SULFATE
  2. CYCLOPHOSPHAMIDE. [Suspect]
     Active Substance: CYCLOPHOSPHAMIDE
  3. PREDNISOLONE. [Suspect]
     Active Substance: PREDNISOLONE
  4. RITUXIMAB. [Suspect]
     Active Substance: RITUXIMAB
  5. DOXORUBICIN [Suspect]
     Active Substance: DOXORUBICIN
  6. VITAMIN D3 [Concomitant]
     Active Substance: CHOLECALCIFEROL

REACTIONS (5)
  - Febrile neutropenia [None]
  - Pneumonia [None]
  - Vitamin D deficiency [None]
  - Cellulitis [None]
  - Urinary tract infection [None]

NARRATIVE: CASE EVENT DATE: 20180914
